FAERS Safety Report 20113750 (Version 4)
Quarter: 2024Q1

REPORT INFORMATION
  Report Type: Report from Study
  Country: US (occurrence: US)
  Receive Date: 20211125
  Receipt Date: 20240105
  Transmission Date: 20240410
  Serious: Yes (Other)
  Sender: FDA-Public Use
  Company Number: US-JAZZ-2021-US-020798

PATIENT
  Age: 22 Year
  Sex: Female

DRUGS (3)
  1. XYREM [Suspect]
     Active Substance: SODIUM OXYBATE
     Indication: Narcolepsy
     Dosage: 2.25 GRAM, BID
     Route: 048
     Dates: start: 201807, end: 201807
  2. XYREM [Suspect]
     Active Substance: SODIUM OXYBATE
     Indication: Cataplexy
     Dosage: DOSE ADJUSTMENT
     Route: 048
     Dates: start: 201807, end: 202108
  3. XYREM [Suspect]
     Active Substance: SODIUM OXYBATE
     Indication: Somnolence
     Dosage: 4.5 GRAM, BID
     Route: 048
     Dates: start: 202108

REACTIONS (6)
  - Tunnel vision [Unknown]
  - Irritable bowel syndrome [Unknown]
  - Tinnitus [Unknown]
  - Dyspnoea [Recovered/Resolved]
  - Viral infection [Unknown]
  - Hunger [Unknown]

NARRATIVE: CASE EVENT DATE: 20211117
